FAERS Safety Report 5648672-8 (Version None)
Quarter: 2008Q1

REPORT INFORMATION
  Report Type: 
  Country: None (occurrence: None)
  Receive Date: 20080304
  Receipt Date: 20080228
  Transmission Date: 20080703
  Serious: Yes (Hospitalization)
  Sender: FDA-Public Use
  Company Number: A0713329A

PATIENT
  Age: 69 Year
  Sex: Male
  Weight: 68.2 kg

DRUGS (2)
  1. LAPATINIB [Suspect]
     Indication: PANCREATIC CARCINOMA METASTATIC
     Dosage: 1500MG PER DAY
     Route: 048
     Dates: start: 20071211
  2. GEMCITABINE [Suspect]
     Indication: PANCREATIC CARCINOMA METASTATIC
     Dosage: 1800MG WEEKLY
     Route: 042
     Dates: start: 20071211

REACTIONS (7)
  - ANAEMIA [None]
  - DYSPNOEA [None]
  - INTERSTITIAL LUNG DISEASE [None]
  - OEDEMA [None]
  - OEDEMA PERIPHERAL [None]
  - PULMONARY OEDEMA [None]
  - THROMBOCYTOPENIA [None]
